FAERS Safety Report 20873106 (Version 4)
Quarter: 2022Q2

REPORT INFORMATION
  Report Type: Report from Study
  Country: CA (occurrence: CA)
  Receive Date: 20220525
  Receipt Date: 20220628
  Transmission Date: 20220720
  Serious: Yes (Other)
  Sender: FDA-Public Use
  Company Number: CA-BIOGEN-2021BI01017494

PATIENT
  Age: 55 Year
  Sex: Male

DRUGS (6)
  1. TECFIDERA [Suspect]
     Active Substance: DIMETHYL FUMARATE
     Indication: Multiple sclerosis
     Route: 048
     Dates: start: 20140824, end: 20220120
  2. TECFIDERA [Suspect]
     Active Substance: DIMETHYL FUMARATE
     Dosage: 120MG IN THE MORNING AND 240MG IN THE EVENING ONLY ON THURSDAY AND SUNDAY.
     Route: 065
  3. TECFIDERA [Suspect]
     Active Substance: DIMETHYL FUMARATE
     Route: 065
     Dates: start: 20220121
  4. TECFIDERA [Suspect]
     Active Substance: DIMETHYL FUMARATE
     Route: 065
  5. TECFIDERA [Suspect]
     Active Substance: DIMETHYL FUMARATE
     Route: 048
  6. TECFIDERA [Suspect]
     Active Substance: DIMETHYL FUMARATE
     Route: 048
     Dates: start: 20140824, end: 20220613

REACTIONS (10)
  - B-lymphocyte count abnormal [Not Recovered/Not Resolved]
  - Prescribed underdose [Recovered/Resolved]
  - Intentional product misuse [Not Recovered/Not Resolved]
  - Underdose [Not Recovered/Not Resolved]
  - Bronchitis [Not Recovered/Not Resolved]
  - Nephrolithiasis [Recovered/Resolved]
  - Antibody test abnormal [Unknown]
  - Lymphocyte count decreased [Not Recovered/Not Resolved]
  - Lymphocyte percentage decreased [Unknown]
  - White blood cell count decreased [Unknown]

NARRATIVE: CASE EVENT DATE: 20220307
